FAERS Safety Report 8257414 (Version 4)
Quarter: 2012Q4

REPORT INFORMATION
  Report Type: 
  Country: US (occurrence: US)
  Receive Date: 20111121
  Receipt Date: 20121221
  Transmission Date: 20130627
  Serious: Yes (Other)
  Sender: FDA-Public Use
  Company Number: US-BAYER-2011-110204

PATIENT
  Age: 28 Year
  Sex: Female

DRUGS (6)
  1. MIRENA [Suspect]
     Indication: CONTRACEPTION
     Dosage: 20 ?g, CONT
     Route: 015
     Dates: start: 20081205
  2. ABILIFY [Concomitant]
  3. WELLBUTRIN [Concomitant]
  4. CLONAZEPAM [Concomitant]
  5. LAMOTRIGINE [Concomitant]
  6. LORAZEPAM [Concomitant]

REACTIONS (5)
  - Vaginal haemorrhage [None]
  - Pregnancy with contraceptive device [None]
  - Device expulsion [None]
  - Breast tenderness [None]
  - Drug ineffective [None]
